FAERS Safety Report 9895013 (Version 1)
Quarter: 2014Q1

REPORT INFORMATION
  Report Type: Spontaneous
  Country: US (occurrence: US)
  Receive Date: 20140213
  Receipt Date: 20140213
  Transmission Date: 20141002
  Serious: No
  Sender: FDA-Public Use
  Company Number: US-BRISTOL-MYERS SQUIBB COMPANY-17336934

PATIENT
  Age: 59 Year
  Sex: Female
  Weight: 68.03 kg

DRUGS (2)
  1. ORENCIA [Suspect]
     Indication: RHEUMATOID ARTHRITIS
     Dosage: IV:JULY12, LAST IV:02NOV12, PRESCRIPTION 6822942?ALSO ON SUBQ FROM 21JAN13, LAST:28JAN2013, 2DOSE
     Route: 042
     Dates: start: 201206
  2. METHOTREXATE [Suspect]

REACTIONS (1)
  - Aphthous stomatitis [Recovered/Resolved]
